FAERS Safety Report 6304124-3 (Version None)
Quarter: 2009Q3

REPORT INFORMATION
  Report Type: 
  Country: None (occurrence: None)
  Receive Date: 20090806
  Receipt Date: 20090728
  Transmission Date: 20100115
  Serious: Yes (Life-Threatening)
  Sender: FDA-Public Use
  Company Number: GXKR2009US08606

PATIENT
  Age: 70 Year
  Sex: Male

DRUGS (7)
  1. ATORVASTATIN CALCIUM [Suspect]
     Indication: HYPERLIPIDAEMIA
  2. SIMVASTATIN [Suspect]
     Indication: HYPERLIPIDAEMIA
  3. EZETIMIBE [Suspect]
     Indication: HYPERLIPIDAEMIA
  4. FLUVASTATIN [Suspect]
     Indication: HYPERLIPIDAEMIA
  5. PRAVASTATIN [Suspect]
     Indication: HYPERLIPIDAEMIA
  6. CERIVASTATIN (CERIVASTATIN) [Suspect]
     Indication: HYPERLIPIDAEMIA
  7. ROSUVASTATIN (ROSUVASTATIN) [Suspect]
     Indication: HYPERLIPIDAEMIA

REACTIONS (1)
  - AMYOTROPHIC LATERAL SCLEROSIS [None]
